FAERS Safety Report 25394785 (Version 3)
Quarter: 2025Q2

REPORT INFORMATION
  Report Type: Spontaneous
  Country: US (occurrence: US)
  Receive Date: 20250604
  Receipt Date: 20250619
  Transmission Date: 20250716
  Serious: Yes (Other)
  Sender: SUNOVION
  Company Number: US-SUMITOMO PHARMA SWITZERLAND GMBH-2025SPA006738

PATIENT

DRUGS (2)
  1. GEMTESA [Suspect]
     Active Substance: VIBEGRON
     Indication: Product used for unknown indication
     Route: 048
  2. XANAX [Suspect]
     Active Substance: ALPRAZOLAM
     Indication: Product used for unknown indication
     Route: 065

REACTIONS (7)
  - Nephrolithiasis [Unknown]
  - Bladder disorder [Unknown]
  - Micturition urgency [Unknown]
  - Urinary incontinence [Unknown]
  - Pain [Unknown]
  - Headache [Unknown]
  - Therapy interrupted [Unknown]
